FAERS Safety Report 5549732-2 (Version None)
Quarter: 2007Q4

REPORT INFORMATION
  Report Type: 
  Country: None (occurrence: None)
  Receive Date: 20071212
  Receipt Date: 20070510
  Transmission Date: 20080405
  Serious: No
  Sender: FDA-Public Use
  Company Number: US-AMGEN-KDL224250

PATIENT
  Sex: Female

DRUGS (2)
  1. ENBREL [Suspect]
     Indication: RHEUMATOID ARTHRITIS
     Route: 058
     Dates: start: 20070214, end: 20070226
  2. ARAVA [Concomitant]
     Dates: start: 20060201

REACTIONS (3)
  - ALOPECIA [None]
  - RASH MACULAR [None]
  - TOOTH ABSCESS [None]
